FAERS Safety Report 4498094-0 (Version None)
Quarter: 2004Q3

REPORT INFORMATION
  Report Type: 
  Country: None (occurrence: None)
  Receive Date: 20040927
  Receipt Date: 20040727
  Transmission Date: 20050211
  Serious: No
  Sender: FDA-Public Use
  Company Number: USA040773823

PATIENT
  Age: 6 Year
  Sex: Female

DRUGS (4)
  1. STRATTERA [Suspect]
     Indication: ATTENTION DEFICIT/HYPERACTIVITY DISORDER
     Dosage: 80 MG DAY
     Dates: start: 20030101
  2. RISPERDAL [Concomitant]
  3. ZOLOFT (SERTYRALINE HYDROCHLORIDE) [Concomitant]
  4. TENEX [Concomitant]

REACTIONS (2)
  - DRUG INEFFECTIVE [None]
  - SKIN LESION [None]
